FAERS Safety Report 12754779 (Version 1)
Quarter: 2016Q3

REPORT INFORMATION
  Report Type: Spontaneous
  Country: US (occurrence: US)
  Receive Date: 20160915
  Receipt Date: 20160915
  Transmission Date: 20161109
  Serious: No
  Sender: FDA-Public Use
  Company Number: US-SHIRE-US201612605

PATIENT
  Age: 26 Year
  Sex: Female
  Weight: 58.96 kg

DRUGS (2)
  1. PENTASA [Suspect]
     Active Substance: MESALAMINE
     Dosage: 2000 MG, (FOUR 500 MG CAPS)2X/DAY:BID
     Route: 048
     Dates: start: 20160831
  2. PENTASA [Suspect]
     Active Substance: MESALAMINE
     Indication: CROHN^S DISEASE
     Dosage: 2000 MG, (FOUR 500 MG CAPS) 2X/DAY:BID
     Route: 048
     Dates: start: 201603, end: 201604

REACTIONS (3)
  - Drug ineffective [Recovered/Resolved]
  - Cough [Recovered/Resolved]
  - Product use issue [Not Recovered/Not Resolved]

NARRATIVE: CASE EVENT DATE: 201603
